FAERS Safety Report 5219227-4 (Version None)
Quarter: 2007Q1

REPORT INFORMATION
  Report Type: 
  Country: None (occurrence: None)
  Receive Date: 20070122
  Receipt Date: 20070110
  Transmission Date: 20070707
  Serious: Yes (Hospitalization, Other)
  Sender: FDA-Public Use
  Company Number: ITWYE940522DEC06

PATIENT
  Age: 57 Year
  Sex: Female

DRUGS (1)
  1. RAPAMUNE [Suspect]
     Indication: PROPHYLAXIS AGAINST TRANSPLANT REJECTION
     Dosage: NOT PROVIDED; ORAL
     Route: 048
     Dates: start: 20060218

REACTIONS (4)
  - BLOOD UREA INCREASED [None]
  - CARDIAC VALVE DISEASE [None]
  - ENDOCARDITIS [None]
  - HYPERTENSION [None]
